FAERS Safety Report 13594896 (Version 3)
Quarter: 2017Q3

REPORT INFORMATION
  Report Type: Report from Study
  Country: US (occurrence: US)
  Receive Date: 20170530
  Receipt Date: 20170815
  Transmission Date: 20171127
  Serious: Yes (Life-Threatening, Hospitalization)
  Sender: FDA-Public Use
  Company Number: US-TEVA-772935USA

PATIENT
  Age: 75 Year
  Sex: Female

DRUGS (16)
  1. LEVOTHYROXINE. [Concomitant]
     Active Substance: LEVOTHYROXINE
     Indication: HYPOTHYROIDISM
     Dosage: 150 MICROGRAM DAILY;
     Route: 048
     Dates: start: 20161213
  2. ONDANSETRON [Concomitant]
     Active Substance: ONDANSETRON
     Indication: NAUSEA
     Route: 048
     Dates: start: 20161209
  3. ONDANSETRON [Concomitant]
     Active Substance: ONDANSETRON
     Indication: NAUSEA
  4. SILVER SULFADIAZENE [Concomitant]
     Active Substance: SILVER SULFADIAZINE
     Indication: VULVOVAGINAL PAIN
  5. ONDANSETRON [Concomitant]
     Active Substance: ONDANSETRON
     Indication: VOMITING
  6. OXYCODONE [Concomitant]
     Active Substance: OXYCODONE
     Indication: PERINEAL PAIN
  7. IRINOTECAN [Suspect]
     Active Substance: IRINOTECAN
     Indication: NEOPLASM
     Route: 042
     Dates: start: 20170228, end: 20170228
  8. FLUOROURACIL. [Suspect]
     Active Substance: FLUOROURACIL
     Route: 042
     Dates: start: 20170228, end: 20170302
  9. ABT-165 [Suspect]
     Active Substance: INVESTIGATIONAL PRODUCT
     Indication: NEOPLASM
     Route: 042
     Dates: start: 20170228, end: 20170228
  10. FOLINIC ACID [Suspect]
     Active Substance: LEUCOVORIN
     Indication: NEOPLASM
     Route: 042
     Dates: start: 20170228, end: 20170228
  11. VICODIN [Concomitant]
     Active Substance: ACETAMINOPHEN\HYDROCODONE BITARTRATE
     Indication: ABDOMINAL PAIN
     Dosage: 5-325 MG
     Route: 048
     Dates: start: 20170109, end: 20170307
  12. LIDOCAINE. [Concomitant]
     Active Substance: LIDOCAINE
     Indication: VULVOVAGINAL PAIN
     Route: 061
     Dates: start: 20170117
  13. OXYCODONE [Concomitant]
     Active Substance: OXYCODONE
     Indication: VULVOVAGINAL PAIN
     Route: 048
     Dates: start: 20170117, end: 20170220
  14. SILVER SULFADIAZENE [Concomitant]
     Active Substance: SILVER SULFADIAZINE
     Indication: PERINEAL PAIN
     Route: 061
     Dates: start: 20170117
  15. LOMOTIL [Concomitant]
     Active Substance: ATROPINE SULFATE\DIPHENOXYLATE HYDROCHLORIDE
     Indication: PROPHYLAXIS AGAINST DIARRHOEA
     Route: 048
     Dates: start: 20170223, end: 20170307
  16. FLUOROURACIL. [Suspect]
     Active Substance: FLUOROURACIL
     Indication: NEOPLASM
     Route: 040
     Dates: start: 20170228, end: 20170228

REACTIONS (1)
  - Febrile neutropenia [Recovered/Resolved]

NARRATIVE: CASE EVENT DATE: 20170307
